FAERS Safety Report 7754055-7 (Version None)
Quarter: 2011Q3

REPORT INFORMATION
  Report Type: 
  Country: None (occurrence: None)
  Receive Date: 20110915
  Receipt Date: 20110909
  Transmission Date: 20111222
  Serious: Yes (Other)
  Sender: FDA-Public Use
  Company Number: US-VERTEX PHARMACEUTICALS INC.-AE-2011-001425

PATIENT
  Sex: Female
  Weight: 55.388 kg

DRUGS (3)
  1. PEGASYS [Concomitant]
     Indication: HEPATITIS C
     Route: 058
     Dates: start: 20110828, end: 20110905
  2. INCIVEK [Suspect]
     Indication: HEPATITIS C
     Dates: start: 20110828, end: 20110909
  3. RIBASPHERE [Concomitant]
     Indication: HEPATITIS C
     Dates: start: 20110828, end: 20110909

REACTIONS (10)
  - COUGH [None]
  - FEELING HOT [None]
  - NAUSEA [None]
  - RETCHING [None]
  - CARDIAC FLUTTER [None]
  - FATIGUE [None]
  - ANORECTAL DISCOMFORT [None]
  - DIZZINESS [None]
  - FALL [None]
  - SKIN DISCOMFORT [None]
